FAERS Safety Report 9123407 (Version 1)
Quarter: 2013Q1

REPORT INFORMATION
  Report Type: Spontaneous
  Country: DE (occurrence: DE)
  Receive Date: 20130115
  Receipt Date: 20130115
  Transmission Date: 20140127
  Serious: Yes (Other)
  Sender: FDA-Public Use
  Company Number: DE-PERRIGO-13DE000128

PATIENT
  Age: 22 Year
  Sex: Male

DRUGS (4)
  1. TESTOSTERONE ENANTHATE [Suspect]
     Indication: DRUG ABUSE
     Dosage: UNKNOWN, UNKNOWN
     Route: 065
  2. TRENBOLONE [Suspect]
     Indication: DRUG ABUSE
     Dosage: UNKNOWN, UNKNOWN
     Route: 065
  3. DROMOSTANOLONE PROPIONATE [Suspect]
     Indication: DRUG ABUSE
     Dosage: UNKNOWN, UNKNOWN
     Route: 065
  4. METHANDROSTENOLONE [Suspect]
     Indication: DRUG ABUSE
     Dosage: UNKNOWN, UNKNOWN
     Route: 065

REACTIONS (11)
  - Acne fulminans [Recovering/Resolving]
  - Arthralgia [Recovering/Resolving]
  - Fatigue [Unknown]
  - Weight decreased [Unknown]
  - Leukocytosis [Unknown]
  - Pyrexia [Unknown]
  - Hypertrophic scar [Not Recovered/Not Resolved]
  - Lymphadenopathy [Unknown]
  - Skin ulcer haemorrhage [Recovering/Resolving]
  - Oedema [Unknown]
  - Joint effusion [Unknown]
